FAERS Safety Report 9035199 (Version 1)
Quarter: 2013Q1

REPORT INFORMATION
  Report Type: Report from Study
  Country: US (occurrence: US)
  Receive Date: 20130129
  Receipt Date: 20130129
  Transmission Date: 20140127
  Serious: No
  Sender: FDA-Public Use
  Company Number: US-ABBOTT-12P-163-0896273-00

PATIENT
  Age: 49 Year
  Sex: Female

DRUGS (8)
  1. HUMIRA 40 MG/0.8 ML PEN [Suspect]
     Indication: RHEUMATOID ARTHRITIS
     Dates: start: 20111230
  2. LIPITOR [Concomitant]
     Indication: BLOOD CHOLESTEROL INCREASED
     Dosage: EVERY DAY
  3. LISINOPRIL [Concomitant]
     Indication: HYPERTENSION
     Dosage: EVERY DAY
  4. MOBIC [Concomitant]
     Indication: RHEUMATOID ARTHRITIS
     Dosage: EVERY DAY
  5. VITAMIN D [Concomitant]
     Indication: VITAMIN D DECREASED
  6. B12 [Concomitant]
     Indication: VITAMIN B12 DECREASED
     Route: 050
  7. JUNEL SE [Concomitant]
     Indication: CONTRACEPTION
     Dosage: 1/20 1 PILL A DAY
  8. TRAMADOL [Concomitant]
     Indication: PRODUCT USED FOR UNKNOWN INDICATION
     Dosage: EVERY DAY AS NEEDED. TAKES AT MOST 1 TIME A DAY

REACTIONS (3)
  - Rash [Not Recovered/Not Resolved]
  - Rash pruritic [Not Recovered/Not Resolved]
  - Rash papular [Not Recovered/Not Resolved]
